FAERS Safety Report 13160236 (Version 2)
Quarter: 2017Q1

REPORT INFORMATION
  Report Type: Spontaneous
  Country: US (occurrence: US)
  Receive Date: 20170127
  Receipt Date: 20170223
  Transmission Date: 20170428
  Serious: No
  Sender: FDA-Public Use
  Company Number: US-ACTELION-A-US2017-149171

PATIENT
  Age: 53 Year
  Sex: Male

DRUGS (5)
  1. VALCHLOR [Suspect]
     Active Substance: MECHLORETHAMINE
     Dosage: UNK, DAILY, START 1X WEEKLY INCREASE AS TOLERATED
     Route: 061
     Dates: start: 20170126
  2. REFRESH EYE ITCH RELIEF [Concomitant]
     Active Substance: KETOTIFEN FUMARATE
  3. TRIAMCINOLONE [Concomitant]
     Active Substance: TRIAMCINOLONE
  4. VALCHLOR [Suspect]
     Active Substance: MECHLORETHAMINE
     Indication: MYCOSIS FUNGOIDES
     Dosage: UNK, DAILY, START 1X WEEKLY INCREASE AS TOLERATED
     Route: 061
     Dates: start: 20161028
  5. CLOBETASOL [Concomitant]
     Active Substance: CLOBETASOL

REACTIONS (3)
  - Application site pruritus [Recovering/Resolving]
  - Application site irritation [Recovering/Resolving]
  - Therapy non-responder [Not Recovered/Not Resolved]
